FAERS Safety Report 7378839-2 (Version None)
Quarter: 2011Q1

REPORT INFORMATION
  Report Type: 
  Country: None (occurrence: None)
  Receive Date: 20110328
  Receipt Date: 20110318
  Transmission Date: 20110831
  Serious: Yes (Hospitalization, Other)
  Sender: FDA-Public Use
  Company Number: PHHY2011RU22394

PATIENT
  Age: 60 Year
  Sex: Female

DRUGS (1)
  1. FORADIL COMBI [Suspect]
     Indication: ASTHMA
     Dosage: 2 DF, QD
     Dates: start: 20100501

REACTIONS (2)
  - CEREBROVASCULAR ACCIDENT [None]
  - HEADACHE [None]
